FAERS Safety Report 18790638 (Version 1)
Quarter: 2021Q1

REPORT INFORMATION
  Report Type: Report from Study
  Country: FR (occurrence: FR)
  Receive Date: 20210126
  Receipt Date: 20210126
  Transmission Date: 20210419
  Serious: Yes (Other)
  Sender: FDA-Public Use
  Company Number: FR-TAKEDA-2021TUS004993

PATIENT
  Age: 79 Year
  Sex: Male

DRUGS (3)
  1. PREDNISONE. [Concomitant]
     Active Substance: PREDNISONE
     Indication: PLASMA CELL MYELOMA
     Dosage: UNK
     Route: 065
     Dates: start: 201908, end: 202002
  2. MELPHALAN. [Concomitant]
     Active Substance: MELPHALAN
     Indication: PLASMA CELL MYELOMA
     Dosage: UNK
     Route: 065
     Dates: start: 201908, end: 202002
  3. BORTEZOMIB. [Suspect]
     Active Substance: BORTEZOMIB
     Indication: PLASMA CELL MYELOMA
     Dosage: UNK
     Route: 065
     Dates: start: 201908, end: 202002

REACTIONS (3)
  - Product prescribing error [Unknown]
  - Plasma cell myeloma [Unknown]
  - Off label use [Unknown]

NARRATIVE: CASE EVENT DATE: 201908
